FAERS Safety Report 4475481-8 (Version None)
Quarter: 2004Q4

REPORT INFORMATION
  Report Type: 
  Country: None (occurrence: None)
  Receive Date: 20041015
  Receipt Date: 20041005
  Transmission Date: 20050328
  Serious: Yes (Hospitalization)
  Sender: FDA-Public Use
  Company Number: GB-BRISTOL-MYERS SQUIBB COMPANY-12722005

PATIENT
  Age: 52 Year
  Sex: Male
  Weight: 89 kg

DRUGS (5)
  1. CISPLATIN [Suspect]
     Indication: MESOTHELIOMA
     Route: 042
     Dates: start: 20030715, end: 20030715
  2. ALIMTA [Suspect]
     Indication: MESOTHELIOMA
     Route: 042
     Dates: start: 20030715, end: 20030715
  3. VITAMIN B-12 [Concomitant]
     Dates: start: 20030617
  4. FOLIC ACID [Concomitant]
     Dates: start: 20030617
  5. DEXAMETHASONE [Concomitant]
     Indication: PREMEDICATION
     Dates: start: 20030714, end: 20030716

REACTIONS (1)
  - MOUTH ULCERATION [None]
